FAERS Safety Report 20521066 (Version 2)
Quarter: 2022Q1

REPORT INFORMATION
  Report Type: Spontaneous
  Country: TR (occurrence: TR)
  Receive Date: 20220225
  Receipt Date: 20220301
  Transmission Date: 20220424
  Serious: Yes (Death)
  Sender: FDA-Public Use
  Company Number: TR-CELLTRION INC.-2022TR002235

PATIENT

DRUGS (5)
  1. TRUXIMA [Suspect]
     Active Substance: RITUXIMAB-ABBS
     Indication: Castleman^s disease
     Dosage: 375 MG/M2 WEEKLY 4 DOSES
     Route: 042
  2. METHYLPREDNISOLONE [Suspect]
     Active Substance: METHYLPREDNISOLONE
     Indication: Castleman^s disease
  3. CYCLOPHOSPHAMIDE\DOXORUBICIN\PREDNISONE\RITUXIMAB\VINCRISTINE [Suspect]
     Active Substance: CYCLOPHOSPHAMIDE\DOXORUBICIN\PREDNISONE\RITUXIMAB\VINCRISTINE
     Indication: Castleman^s disease
     Dosage: 375 MG/M2 ON THE FIRST DAY OF COMBINATION CHEMOTHERAPY 3 WEEKLY
     Route: 042
  4. CYCLOPHOSPHAMIDE\PREDNISONE\VINCRISTINE [Suspect]
     Active Substance: CYCLOPHOSPHAMIDE\PREDNISONE\VINCRISTINE
     Indication: Castleman^s disease
     Dosage: 375 MG/M2 ON THE FIRST DAY OF COMBINATION CHEMOTHERAPY 3 WEEKLY
     Route: 042
  5. RITUXIMAB [Suspect]
     Active Substance: RITUXIMAB

REACTIONS (2)
  - Death [Fatal]
  - Off label use [Unknown]
